FAERS Safety Report 15690174 (Version 10)
Quarter: 2022Q1

REPORT INFORMATION
  Report Type: Report from Study
  Country: US (occurrence: None)
  Receive Date: 20181205
  Receipt Date: 20220307
  Transmission Date: 20220424
  Serious: Yes (Death, Hospitalization)
  Sender: FDA-Public Use
  Company Number: US-ROCHE-2163412

PATIENT
  Age: 72 Year
  Sex: Female
  Weight: 53.7 kg

DRUGS (52)
  1. ATEZOLIZUMAB [Suspect]
     Active Substance: ATEZOLIZUMAB
     Indication: Ovarian cancer
     Dosage: MOST RECENT DOSE PRIOR TO EVENT ONSET (MYASTHENIA GRAVIS, OCULAR MYSTHENIA GRAVIS AND FALL) ON 03/JU
     Route: 041
     Dates: start: 20180501
  2. BEVACIZUMAB [Suspect]
     Active Substance: BEVACIZUMAB
     Indication: Ovarian cancer
     Dosage: MOST RECENT DOSE PRIOR TO EVENT ONSET (MYASTHENIA GRAVIS) ON 03/JUL/2018 (800 MG)?MOST RECENT DOSE P
     Route: 042
     Dates: start: 20180523
  3. PACLITAXEL [Suspect]
     Active Substance: PACLITAXEL
     Indication: Ovarian cancer
     Dosage: MOST RECENT DOSE PRIOR TO EVENT ONSET (MYASTHENIA GRAVIS) ON 03/JUL/2018 (276 MG)?MOST RECENT DOSE P
     Route: 042
     Dates: start: 20180501
  4. CARBOPLATIN [Suspect]
     Active Substance: CARBOPLATIN
     Indication: Ovarian cancer
     Dosage: AT A DOSE TO ACHIEVE A TARGET AREA UNDER THE CURVE (AUC) OF 6 MILLIGRAMS PER MILLILITER*MINUTE (MG/M
     Route: 042
     Dates: start: 20180501
  5. IBUPROFEN [Concomitant]
     Active Substance: IBUPROFEN
     Indication: Pain
     Dates: start: 20180328
  6. EMLA [Concomitant]
     Active Substance: LIDOCAINE\PRILOCAINE
     Indication: Chemotherapy side effect prophylaxis
     Dates: start: 20180501, end: 20180801
  7. DEXAMETHASONE [Concomitant]
     Active Substance: DEXAMETHASONE
     Indication: Chemotherapy side effect prophylaxis
     Route: 048
     Dates: start: 20180430, end: 20180829
  8. DEXAMETHASONE [Concomitant]
     Active Substance: DEXAMETHASONE
     Route: 048
     Dates: start: 20180702, end: 20180703
  9. DEXAMETHASONE [Concomitant]
     Active Substance: DEXAMETHASONE
     Route: 048
     Dates: start: 20180807, end: 20180808
  10. DEXAMETHASONE [Concomitant]
     Active Substance: DEXAMETHASONE
     Route: 048
     Dates: start: 20180828, end: 20180829
  11. TYLENOL [Concomitant]
     Active Substance: ACETAMINOPHEN
     Indication: Pain
     Dates: start: 20180424
  12. FOSAPREPITANT [Concomitant]
     Active Substance: FOSAPREPITANT
     Indication: Chemotherapy side effect prophylaxis
     Dates: start: 20180501, end: 20180829
  13. DIPHENHYDRAMINE [Concomitant]
     Active Substance: DIPHENHYDRAMINE
     Indication: Chemotherapy side effect prophylaxis
     Dates: start: 20180501, end: 20180829
  14. ZANTAC [Concomitant]
     Active Substance: RANITIDINE HYDROCHLORIDE
     Indication: Chemotherapy side effect prophylaxis
     Dates: start: 20180501, end: 20180829
  15. ZANTAC [Concomitant]
     Active Substance: RANITIDINE HYDROCHLORIDE
     Indication: Rash
  16. COLACE [Concomitant]
     Active Substance: DOCUSATE SODIUM
     Indication: Constipation
     Dates: start: 20180328
  17. COMPAZINE [Concomitant]
     Active Substance: PROCHLORPERAZINE MALEATE
     Indication: Nausea
     Dates: start: 20180501
  18. ZOFRAN [Concomitant]
     Active Substance: ONDANSETRON HYDROCHLORIDE
     Indication: Nausea
     Dates: start: 20180501
  19. SENOKOT [Concomitant]
     Active Substance: SENNOSIDES
     Indication: Constipation
     Dates: start: 20180507
  20. RANITIDINE [Concomitant]
     Active Substance: RANITIDINE
     Indication: Rash
     Dates: start: 20180512
  21. ONDANSETRON [Concomitant]
     Active Substance: ONDANSETRON
     Dates: start: 20140501
  22. ZITHROMAX [Concomitant]
     Active Substance: AZITHROMYCIN DIHYDRATE
     Indication: Upper-airway cough syndrome
     Dates: start: 20180727, end: 20180801
  23. ASPIRIN [Concomitant]
     Active Substance: ASPIRIN
     Indication: Antiplatelet therapy
     Route: 065
     Dates: start: 20180731, end: 20180731
  24. ENOXAPARIN [Concomitant]
     Active Substance: ENOXAPARIN
     Indication: Deep vein thrombosis
     Route: 065
     Dates: start: 20180731, end: 20180731
  25. NEULASTA [Concomitant]
     Active Substance: PEGFILGRASTIM
     Indication: White blood cell count decreased
     Dates: start: 20180809, end: 20180809
  26. SODIUM CHLORIDE [Concomitant]
     Active Substance: SODIUM CHLORIDE
     Indication: Hyponatraemia
     Dates: start: 20180918
  27. TIMOLOL [Concomitant]
     Active Substance: TIMOLOL
     Dates: start: 20180731, end: 20180731
  28. SYNTHROID [Concomitant]
     Active Substance: LEVOTHYROXINE SODIUM
     Indication: Hypothyroidism
     Dates: start: 20180906
  29. HYDROMORPHONE [Concomitant]
     Active Substance: HYDROMORPHONE
     Indication: Pain
     Dates: start: 20181003
  30. LORAZEPAM [Concomitant]
     Active Substance: LORAZEPAM
     Indication: Anxiety
     Dates: start: 20181007
  31. PANTOPRAZOLE [Concomitant]
     Active Substance: PANTOPRAZOLE
     Dates: start: 20181006
  32. INSULIN NOS [Concomitant]
     Active Substance: INSULIN NOS
     Dates: start: 20181004
  33. METHYLPREDNISOLONE [Concomitant]
     Active Substance: METHYLPREDNISOLONE
     Route: 048
     Dates: start: 20180925, end: 20181003
  34. FLUCONAZOLE [Concomitant]
     Active Substance: FLUCONAZOLE
     Dates: start: 20181003
  35. MEROPENEM [Concomitant]
     Active Substance: MEROPENEM
     Dates: start: 20180928
  36. FENTANYL [Concomitant]
     Active Substance: FENTANYL
     Dates: start: 20180925
  37. METOPROLOL [Concomitant]
     Active Substance: METOPROLOL
     Dates: start: 20180927
  38. FUROSEMIDE [Concomitant]
     Active Substance: FUROSEMIDE
     Dates: start: 20180926
  39. MAGNESIUM SULFATE [Concomitant]
     Active Substance: MAGNESIUM SULFATE
     Indication: Hypomagnesaemia
     Dates: start: 20180925
  40. FAMOTIDINE [Concomitant]
     Active Substance: FAMOTIDINE
     Dates: start: 20180926, end: 20180926
  41. FAMOTIDINE [Concomitant]
     Active Substance: FAMOTIDINE
     Dates: start: 20180501, end: 20180829
  42. LEVOTHYROXINE [Concomitant]
     Active Substance: LEVOTHYROXINE
     Indication: Hypothyroidism
     Dates: start: 20180926
  43. ACETAMINOPHEN [Concomitant]
     Active Substance: ACETAMINOPHEN
     Indication: Pain
     Dates: start: 20180925, end: 20181003
  44. HYDROCORTISONE [Concomitant]
     Active Substance: HYDROCORTISONE
     Route: 048
     Dates: start: 20181002, end: 20181002
  45. DAPSONE [Concomitant]
     Active Substance: DAPSONE
     Dates: start: 20180927, end: 20181003
  46. POTASSIUM PHOSPHATE, MONOBASIC [Concomitant]
     Active Substance: POTASSIUM PHOSPHATE, MONOBASIC
     Indication: Hypophosphataemia
     Dates: start: 20180930, end: 20181003
  47. OXYCODONE [Concomitant]
     Active Substance: OXYCODONE
     Indication: Pain
     Dates: start: 20180928, end: 20181002
  48. ZOSYN [Concomitant]
     Active Substance: PIPERACILLIN SODIUM\TAZOBACTAM SODIUM
     Dates: start: 20180925, end: 20180928
  49. MICAFUNGIN [Concomitant]
     Active Substance: MICAFUNGIN
     Dates: start: 20180925, end: 20180928
  50. VANCOMYCIN [Concomitant]
     Active Substance: VANCOMYCIN
     Dates: start: 20180925, end: 20180928
  51. CEFEPIME [Concomitant]
     Active Substance: CEFEPIME HYDROCHLORIDE
     Dates: start: 20180925
  52. PHENYLEPHRINE [Concomitant]
     Active Substance: PHENYLEPHRINE HYDROCHLORIDE
     Indication: Nasopharyngitis
     Dates: start: 20181002

REACTIONS (3)
  - Myasthenia gravis [Fatal]
  - Fall [Recovered/Resolved]
  - Ocular myasthenia [Recovered/Resolved]

NARRATIVE: CASE EVENT DATE: 20180723
